FAERS Safety Report 9130832 (Version 4)
Quarter: 2013Q2

REPORT INFORMATION
  Report Type: Spontaneous
  Country: JP (occurrence: JP)
  Receive Date: 20130301
  Receipt Date: 20130426
  Transmission Date: 20140414
  Serious: Yes (Hospitalization, Other)
  Sender: FDA-Public Use
  Company Number: JP-PFIZER INC-2013070957

PATIENT
  Age: 82 Year
  Sex: Male
  Weight: 62 kg

DRUGS (7)
  1. LYRICA [Suspect]
     Indication: PAIN
     Dosage: 25 MG, 2X/DAY
     Route: 048
     Dates: start: 201202, end: 201210
  2. LYRICA [Suspect]
     Indication: HYPOAESTHESIA
     Dosage: 50 MG, 2X/DAY
     Route: 048
     Dates: start: 20121009, end: 20130116
  3. DEZOLAM [Concomitant]
     Indication: INSOMNIA
     Dosage: 0.5 MG, 1X/DAY
     Route: 048
     Dates: start: 200709, end: 201301
  4. METHYCOBIDE [Concomitant]
     Indication: NEUROPATHY PERIPHERAL
     Dosage: UNK
     Route: 048
     Dates: start: 200709
  5. TERNELIN [Concomitant]
     Indication: PERIARTHRITIS
     Dosage: UNK
     Route: 048
     Dates: start: 200709
  6. NE SOFT [Concomitant]
     Indication: HYPERLIPIDAEMIA
     Dosage: UNK
     Route: 048
     Dates: start: 200709
  7. EPADEL S [Concomitant]
     Indication: HYPERLIPIDAEMIA
     Dosage: 1 DF, 2X/DAY
     Route: 048
     Dates: start: 200712

REACTIONS (3)
  - Cerebral infarction [Recovered/Resolved with Sequelae]
  - Monoplegia [Unknown]
  - Arrhythmia [Unknown]
